FAERS Safety Report 5964740-5 (Version None)
Quarter: 2008Q4

REPORT INFORMATION
  Report Type: 
  Country: None (occurrence: None)
  Receive Date: 20081125
  Receipt Date: 20080305
  Transmission Date: 20090506
  Serious: No
  Sender: FDA-Public Use
  Company Number: US-AMGEN-US268447

PATIENT
  Sex: Female

DRUGS (2)
  1. ENBREL [Suspect]
     Indication: RHEUMATOID ARTHRITIS
     Route: 058
     Dates: start: 20070621
  2. HYDROXYCHLOROQUINE SULFATE [Concomitant]
     Route: 048
     Dates: start: 19900101

REACTIONS (2)
  - ARTHRALGIA [None]
  - JOINT STIFFNESS [None]
